FAERS Safety Report 25095346 (Version 3)
Quarter: 2025Q2

REPORT INFORMATION
  Report Type: Spontaneous
  Country: JP (occurrence: JP)
  Receive Date: 20250319
  Receipt Date: 20250508
  Transmission Date: 20250716
  Serious: Yes (Hospitalization, Other)
  Sender: MERCK SHARP & DOHME LLC
  Company Number: JP-MSD-M2024-54983

PATIENT
  Age: 77 Year
  Sex: Male

DRUGS (2)
  1. KEYTRUDA [Suspect]
     Active Substance: PEMBROLIZUMAB
     Indication: Transitional cell carcinoma
     Dosage: DOSE DESCRIPTION : 200 MILLIGRAM, Q3W?DAILY DOSE : 9.4 MILLIGRAM?REGIMEN DOSE : 200  MILLIGRAM
     Route: 041
     Dates: start: 20241219
  2. PADCEV [Suspect]
     Active Substance: ENFORTUMAB VEDOTIN-EJFV
     Indication: Transitional cell carcinoma
     Route: 041
     Dates: start: 20241219, end: 20241226

REACTIONS (7)
  - Stevens-Johnson syndrome [Recovering/Resolving]
  - Interstitial lung disease [Recovering/Resolving]
  - Liver disorder [Recovering/Resolving]
  - C-reactive protein increased [Not Recovered/Not Resolved]
  - Pyrexia [Recovering/Resolving]
  - Rash erythematous [Recovering/Resolving]
  - Skin erosion [Recovering/Resolving]

NARRATIVE: CASE EVENT DATE: 20241220
